FAERS Safety Report 4288869-5 (Version None)
Quarter: 2004Q1

REPORT INFORMATION
  Report Type: 
  Country: None (occurrence: None)
  Receive Date: 20040205
  Receipt Date: 20040128
  Transmission Date: 20041129
  Serious: Yes (Hospitalization)
  Sender: FDA-Public Use
  Company Number: 2003-12-0414

PATIENT
  Age: 54 Year
  Sex: Female
  Weight: 57 kg

DRUGS (5)
  1. INTRON A [Suspect]
     Indication: HEPATITIS C
     Dosage: 6 MU QD INTRAMUSCULAR
     Route: 030
     Dates: start: 20031112, end: 20031121
  2. REBETOL [Suspect]
     Indication: CHRONIC HEPATITIS
     Dosage: 800 MG QD ORAL
     Route: 048
     Dates: start: 20031112, end: 20031121
  3. TOCOPHEROL CONCENTRATE CAP [Concomitant]
  4. ASCORBIC ACID [Concomitant]
  5. RILAMAZAFONE HYDROCHLORIDE [Concomitant]

REACTIONS (8)
  - ABDOMINAL PAIN UPPER [None]
  - ANOREXIA [None]
  - ANXIETY [None]
  - DEPRESSION [None]
  - DYSKINESIA [None]
  - DYSPEPSIA [None]
  - INSOMNIA [None]
  - PAIN [None]
